FAERS Safety Report 7117804-7 (Version None)
Quarter: 2010Q4

REPORT INFORMATION
  Report Type: 
  Country: None (occurrence: None)
  Receive Date: 20101123
  Receipt Date: 20101118
  Transmission Date: 20110411
  Serious: No
  Sender: FDA-Public Use
  Company Number: US-BIOGENIDEC-2010BI040709

PATIENT
  Sex: Female

DRUGS (4)
  1. AVONEX [Suspect]
     Indication: MULTIPLE SCLEROSIS
     Route: 030
     Dates: start: 19960119, end: 20030101
  2. AVONEX [Suspect]
     Route: 030
     Dates: start: 20030101
  3. VESICARE [Concomitant]
     Indication: POLLAKIURIA
  4. ANTIBIOTIC (NOS) [Concomitant]
     Indication: URINARY TRACT INFECTION

REACTIONS (12)
  - BLOOD CHOLESTEROL INCREASED [None]
  - HYPERTENSION [None]
  - HYPERTHYROIDISM [None]
  - HYPOTHYROIDISM [None]
  - MEMORY IMPAIRMENT [None]
  - MIGRAINE [None]
  - MULTIPLE SCLEROSIS [None]
  - OPTIC NERVE DISORDER [None]
  - POLLAKIURIA [None]
  - URINARY TRACT INFECTION [None]
  - VISUAL IMPAIRMENT [None]
  - VISUAL PATHWAY DISORDER [None]
